FAERS Safety Report 15012931 (Version 1)
Quarter: 2018Q2

REPORT INFORMATION
  Report Type: Spontaneous
  Country: US (occurrence: US)
  Receive Date: 20180614
  Receipt Date: 20180614
  Transmission Date: 20180711
  Serious: Yes (Hospitalization)
  Sender: FDA-Public Use
  Company Number: US-TEVA-2018-US-905510

PATIENT
  Age: 7 Decade
  Sex: Female

DRUGS (3)
  1. ITRACONAZOLE. [Suspect]
     Active Substance: ITRACONAZOLE
     Indication: HISTOPLASMOSIS DISSEMINATED
     Route: 065
  2. VORICONAZOLE. [Suspect]
     Active Substance: VORICONAZOLE
     Indication: HISTOPLASMOSIS DISSEMINATED
     Route: 065
  3. POSACONAZOLE [Suspect]
     Active Substance: POSACONAZOLE
     Indication: HISTOPLASMOSIS DISSEMINATED
     Dosage: EXTENDED RELEASE TABLET
     Route: 065

REACTIONS (5)
  - Alopecia [Unknown]
  - Urticaria [Unknown]
  - Pseudoaldosteronism [Recovered/Resolved]
  - Hyperaldosteronism [Recovered/Resolved]
  - Oedema [Recovered/Resolved]
